FAERS Safety Report 8146822-5 (Version None)
Quarter: 2012Q1

REPORT INFORMATION
  Report Type: 
  Country: None (occurrence: None)
  Receive Date: 20120217
  Receipt Date: 20110808
  Transmission Date: 20120608
  Serious: No
  Sender: FDA-Public Use
  Company Number: US-ABBOTT-11P-163-0844592-00

PATIENT
  Sex: Male
  Weight: 68.1 kg

DRUGS (3)
  1. HYDROCODONE [Concomitant]
     Indication: BACK PAIN
  2. SIMCOR [Suspect]
     Indication: LOW DENSITY LIPOPROTEIN INCREASED
     Dosage: 500/20MG ONCE IN THE MORNING
     Route: 048
     Dates: start: 20110801
  3. FLOMAX [Concomitant]
     Indication: PRODUCT USED FOR UNKNOWN INDICATION

REACTIONS (3)
  - ABDOMINAL PAIN [None]
  - ABDOMINAL DISCOMFORT [None]
  - EMOTIONAL DISTRESS [None]
